FAERS Safety Report 5610976-2 (Version None)
Quarter: 2008Q1

REPORT INFORMATION
  Report Type: 
  Country: None (occurrence: None)
  Receive Date: 20080201
  Receipt Date: 20080131
  Transmission Date: 20080703
  Serious: Yes (Other)
  Sender: FDA-Public Use
  Company Number: A0706535A

PATIENT
  Age: 45 Year
  Sex: Female
  Weight: 84.1 kg

DRUGS (9)
  1. ALLI [Suspect]
     Route: 048
     Dates: start: 20080116, end: 20080126
  2. METOPROLOL TARTRATE [Concomitant]
  3. DIGOXIN [Concomitant]
  4. NORVASC [Concomitant]
  5. CLONIDINE [Concomitant]
     Route: 062
  6. DIOVAN [Concomitant]
  7. ALTACE [Concomitant]
  8. ASPIRIN [Concomitant]
  9. FLORINEF [Concomitant]

REACTIONS (13)
  - ABDOMINAL DISTENSION [None]
  - ABDOMINAL PAIN UPPER [None]
  - CRYING [None]
  - DIARRHOEA [None]
  - FAECES PALE [None]
  - FEAR [None]
  - GALLBLADDER DISORDER [None]
  - HAEMATOCHEZIA [None]
  - ILL-DEFINED DISORDER [None]
  - NEPHROLITHIASIS [None]
  - RECTAL HAEMORRHAGE [None]
  - ULCER [None]
  - VOMITING [None]
